FAERS Safety Report 13406158 (Version 1)
Quarter: 2017Q2

REPORT INFORMATION
  Report Type: Spontaneous
  Country: US (occurrence: US)
  Receive Date: 20170405
  Receipt Date: 20170405
  Transmission Date: 20170830
  Serious: No
  Sender: FDA-Public Use
  Company Number: US-ELI_LILLY_AND_COMPANY-US201607010837

PATIENT

DRUGS (1)
  1. CYMBALTA [Suspect]
     Active Substance: DULOXETINE HYDROCHLORIDE
     Indication: FIBROMYALGIA
     Dosage: 30 MG, QD
     Route: 065
     Dates: start: 20140723

REACTIONS (13)
  - Depressed mood [Unknown]
  - Nausea [Unknown]
  - Confusional state [Unknown]
  - Anxiety [Unknown]
  - Hyperhidrosis [Unknown]
  - Insomnia [Unknown]
  - Mood swings [Unknown]
  - Tremor [Unknown]
  - Fatigue [Unknown]
  - Paraesthesia [Unknown]
  - Dizziness [Unknown]
  - Headache [Unknown]
  - Drug withdrawal syndrome [Unknown]
